FAERS Safety Report 7244803-7 (Version None)
Quarter: 2011Q1

REPORT INFORMATION
  Report Type: 
  Country: None (occurrence: None)
  Receive Date: 20110126
  Receipt Date: 20110120
  Transmission Date: 20110831
  Serious: No
  Sender: FDA-Public Use
  Company Number: US-BIOGENIDEC-2011BI002647

PATIENT
  Age: 45 Year
  Sex: Female

DRUGS (1)
  1. TYSABRI [Suspect]
     Indication: MULTIPLE SCLEROSIS
     Route: 042
     Dates: start: 20070215

REACTIONS (11)
  - INSOMNIA [None]
  - BALANCE DISORDER [None]
  - DYSURIA [None]
  - GAIT DISTURBANCE [None]
  - DEPRESSED MOOD [None]
  - FEELING GUILTY [None]
  - FATIGUE [None]
  - ANXIETY [None]
  - MUSCULOSKELETAL PAIN [None]
  - FEAR [None]
  - BACK PAIN [None]
